FAERS Safety Report 8835102 (Version 2)
Quarter: 2013Q1

REPORT INFORMATION
  Report Type: Spontaneous
  Country: IT (occurrence: None)
  Receive Date: 20121009
  Receipt Date: 20130328
  Transmission Date: 20140127
  Serious: Yes (Other)
  Sender: FDA-Public Use
  Company Number: AUR-APL-2012-04287

PATIENT
  Age: 70 Year
  Sex: Female

DRUGS (7)
  1. ATENOLOL (ATENOLOL) [Suspect]
     Indication: PRODUCT USED FOR UNKNOWN INDICATION
     Route: 048
     Dates: start: 20120101, end: 20120910
  2. HALCION [Suspect]
     Indication: PRODUCT USED FOR UNKNOWN INDICATION
     Route: 048
     Dates: start: 20120101, end: 20120910
  3. LOSARTAN [Suspect]
     Indication: PRODUCT USED FOR UNKNOWN INDICATION
     Route: 048
     Dates: start: 20120101, end: 20120910
  4. ZANEPID [Suspect]
     Indication: PRODUCT USED FOR UNKNOWN INDICATION
     Route: 048
     Dates: start: 20120101, end: 20120910
  5. CARDIOASPIRIN (ACETYLSALICYLIC ACID) [Concomitant]
  6. TORVAST (ATORVASTATIN CALCIUM) [Concomitant]
  7. OMEPRAZOLE (OMEPRAZOLE) [Concomitant]

REACTIONS (11)
  - Cold sweat [None]
  - Flushing [None]
  - Syncope [None]
  - Hyperhidrosis [None]
  - C-reactive protein increased [None]
  - Blood pressure systolic increased [None]
  - Blood glucose increased [None]
  - Lymphocyte percentage decreased [None]
  - Neutrophil percentage increased [None]
  - Oxygen saturation decreased [None]
  - White blood cell count increased [None]
